FAERS Safety Report 8417146-3 (Version None)
Quarter: 2012Q2

REPORT INFORMATION
  Report Type: 
  Country: None (occurrence: None)
  Receive Date: 20120606
  Receipt Date: 20120530
  Transmission Date: 20120825
  Serious: Yes (Hospitalization)
  Sender: FDA-Public Use
  Company Number: US-ACTELION-A-NJ2012-63148

PATIENT

DRUGS (3)
  1. TRACLEER [Suspect]
     Indication: PULMONARY ARTERIAL HYPERTENSION
     Dosage: 62.5 MG, BID
     Route: 048
     Dates: start: 20120308
  2. PLAVIX [Concomitant]
  3. PREDNISONE TAB [Concomitant]

REACTIONS (4)
  - GASTRIC HAEMORRHAGE [None]
  - FLUID OVERLOAD [None]
  - FLUID RETENTION [None]
  - DYSPNOEA [None]
